FAERS Safety Report 15391441 (Version 1)
Quarter: 2018Q3

REPORT INFORMATION
  Report Type: Spontaneous
  Country: DE (occurrence: DE)
  Receive Date: 20180917
  Receipt Date: 20180917
  Transmission Date: 20181010
  Serious: Yes (Life-Threatening, Other)
  Sender: FDA-Public Use
  Company Number: DE-GLAXOSMITHKLINE-DE2018166530

PATIENT
  Age: 17 Year
  Sex: Female
  Weight: 57 kg

DRUGS (3)
  1. DESOGESTREL [Suspect]
     Active Substance: DESOGESTREL
     Indication: CONTRACEPTION
     Dosage: DAILY DOSE: 75 ?G MICROGRAM(S) EVERY DAYS
     Route: 048
     Dates: start: 201703
  2. LAMOTRIGINE. [Suspect]
     Active Substance: LAMOTRIGINE
     Indication: IDIOPATHIC GENERALISED EPILEPSY
     Dosage: DAILY DOSE: 250 MG MILLGRAM(S) EVERY DAYS
     Route: 048
     Dates: start: 201610
  3. BUCCOLAM [Concomitant]
     Active Substance: MIDAZOLAM HYDROCHLORIDE
     Indication: EMERGENCY CARE
     Dosage: 10 MG, UNK
     Route: 048
     Dates: start: 20170309, end: 20170309

REACTIONS (1)
  - Seizure [Recovered/Resolved]

NARRATIVE: CASE EVENT DATE: 20170309
